FAERS Safety Report 10072407 (Version 1)
Quarter: 2014Q2

REPORT INFORMATION
  Report Type: Report from Study
  Country: US (occurrence: US)
  Receive Date: 20140411
  Receipt Date: 20140411
  Transmission Date: 20141212
  Serious: Yes (Life-Threatening, Hospitalization)
  Sender: FDA-Public Use
  Company Number: US-JNJFOC-20140406765

PATIENT
  Age: 87 Year
  Sex: Female

DRUGS (1)
  1. NUCYNTA [Suspect]
     Indication: PRODUCT USED FOR UNKNOWN INDICATION
     Route: 048

REACTIONS (6)
  - Wrong drug administered [Unknown]
  - Sepsis [Recovered/Resolved]
  - Mental status changes [Recovering/Resolving]
  - Respiratory rate decreased [Unknown]
  - Blood pressure decreased [Unknown]
  - Opiates positive [Unknown]
